FAERS Safety Report 5714090-7 (Version None)
Quarter: 2008Q2

REPORT INFORMATION
  Report Type: 
  Country: None (occurrence: None)
  Receive Date: 20080423
  Receipt Date: 20080415
  Transmission Date: 20081010
  Serious: Yes (Other)
  Sender: FDA-Public Use
  Company Number: US-BAYER-200820111NA

PATIENT
  Age: 17 Year
  Sex: Female

DRUGS (2)
  1. YAZ [Suspect]
     Indication: CONTRACEPTION
     Dates: start: 20080201, end: 20080401
  2. LISPRO [Concomitant]

REACTIONS (7)
  - BLINDNESS [None]
  - CEREBRAL VENTRICLE DILATATION [None]
  - EYE PAIN [None]
  - MENTAL STATUS CHANGES [None]
  - MIGRAINE [None]
  - VISION BLURRED [None]
  - VISUAL DISTURBANCE [None]
